FAERS Safety Report 4323274-4 (Version None)
Quarter: 2004Q1

REPORT INFORMATION
  Report Type: 
  Country: None (occurrence: None)
  Receive Date: 20040324
  Receipt Date: 20040324
  Transmission Date: 20041129
  Serious: Yes (Other)
  Sender: FDA-Public Use
  Company Number: None

PATIENT
  Sex: Male
  Weight: 102.5129 kg

DRUGS (3)
  1. LIPITOR [Suspect]
     Indication: CEREBROVASCULAR ACCIDENT
     Dosage: 10 MG QHS ORAL
     Route: 048
     Dates: start: 19990101, end: 20040322
  2. LIPITOR [Suspect]
     Indication: HYPERCHOLESTEROLAEMIA
     Dosage: 10 MG QHS ORAL
     Route: 048
     Dates: start: 19990101, end: 20040322
  3. ASPIRIN [Concomitant]

REACTIONS (3)
  - MEDICATION TAMPERING [None]
  - MYALGIA [None]
  - PHARMACEUTICAL PRODUCT COMPLAINT [None]
